FAERS Safety Report 17804902 (Version 4)
Quarter: 2021Q4

REPORT INFORMATION
  Report Type: Report from Study
  Country: NL (occurrence: NL)
  Receive Date: 20200520
  Receipt Date: 20211015
  Transmission Date: 20220303
  Serious: Yes (Life-Threatening, Hospitalization, Other)
  Sender: FDA-Public Use
  Company Number: NL-AMGEN-NLDSL2020039253

PATIENT
  Age: 53 Year
  Sex: Female

DRUGS (19)
  1. XGEVA [Suspect]
     Active Substance: DENOSUMAB
     Indication: Prophylaxis
     Dosage: 120 MILLIGRAM//1,7ML, Q4WK
     Route: 058
     Dates: start: 20190919
  2. XGEVA [Suspect]
     Active Substance: DENOSUMAB
     Dosage: 120 MILLIGRAM//1,7ML, Q4WK
     Route: 058
  3. CAPECITABINE [Suspect]
     Active Substance: CAPECITABINE
     Indication: Breast cancer metastatic
     Dosage: 2300 MILLIGRAM, BID
     Route: 048
     Dates: start: 20190820
  4. CALCIUM CARBONATE\CHOLECALCIFEROL [Concomitant]
     Active Substance: CALCIUM CARBONATE\CHOLECALCIFEROL
     Dosage: 1.25G/440IE (500MG CA), QD
  5. FENTANYL [Concomitant]
     Active Substance: FENTANYL
     Dosage: LASTER 12UG/HR (GENERIC+DUROGESIC) 1X PER 3D 1PLASTER
  6. FENTANYL [Concomitant]
     Active Substance: FENTANYL
     Dosage: PLASTER 25UG/HR (GENERIC+DUROGESIC) 1X PER 3D 1PLASTER
  7. FENTANYL [Concomitant]
     Active Substance: FENTANYL
     Dosage: PLASTER 50UG/HR (GENERIC+DUROGESIC) 1X PER 3D 1PLASTER
  8. FENTANYL [Concomitant]
     Active Substance: FENTANYL
     Dosage: TABLET SUBLINGUAL 100UG WHEN NEEDED 4XD 2T
  9. FENTANYL [Concomitant]
     Active Substance: FENTANYL
     Dosage: TABLET SUBLINGUAL 200UG 1-4XD 1T WHEN NEEDED
  10. OMEPRAZOLE [Concomitant]
     Active Substance: OMEPRAZOLE
     Dosage: 40 MILLIGRAM, QD
  11. CLEMASTINE [Concomitant]
     Active Substance: CLEMASTINE
  12. DICLOFENAC SODIUM [Concomitant]
     Active Substance: DICLOFENAC SODIUM
  13. POLYETHYLENE GLYCOLS [Concomitant]
     Active Substance: POLYETHYLENE GLYCOLS
     Dosage: SALTS PDR V DRANK (MOVIC/MOLAX/LAXT/GEN), 1D1S
  14. MAGNESIUM HYDROXIDE [Concomitant]
     Active Substance: MAGNESIUM HYDROXIDE
     Dosage: CHEWTABLET 724MG, 1-3D1-2T
  15. ONDANSETRON [Concomitant]
     Active Substance: ONDANSETRON
     Dosage: TABLET 8MG, 1D1T
  16. PREGABALIN [Concomitant]
     Active Substance: PREGABALIN
     Dosage: 75 MILLIGRAM,2-3D2C
  17. RIVAROXABAN [Concomitant]
     Active Substance: RIVAROXABAN
  18. DEXAMETHASONE [Concomitant]
     Active Substance: DEXAMETHASONE
     Dosage: 0.5 MILLIGRAM, QD
  19. DOLOPHINE [Concomitant]
     Active Substance: METHADONE HYDROCHLORIDE
     Dosage: 5 MILLIGRAM, 2D1T

REACTIONS (3)
  - Pulmonary embolism [Recovered/Resolved]
  - Bone cancer metastatic [Unknown]
  - Unevaluable event [Unknown]

NARRATIVE: CASE EVENT DATE: 20200221
